FAERS Safety Report 16149312 (Version 3)
Quarter: 2020Q2

REPORT INFORMATION
  Report Type: Report from Study
  Country: DO (occurrence: DO)
  Receive Date: 20190402
  Receipt Date: 20200609
  Transmission Date: 20200713
  Serious: Yes (Other)
  Sender: FDA-Public Use
  Company Number: PHHY2019DO028730

PATIENT
  Sex: Female
  Weight: 87 kg

DRUGS (1)
  1. GILENYA [Suspect]
     Active Substance: FINGOLIMOD HYDROCHLORIDE
     Indication: RELAPSING-REMITTING MULTIPLE SCLEROSIS
     Dosage: 0.5 MG, QD
     Route: 048
     Dates: start: 20180920

REACTIONS (9)
  - Bipolar disorder [Unknown]
  - Spinal cord injury cervical [Unknown]
  - Brain injury [Unknown]
  - Stress [Unknown]
  - Malaise [Unknown]
  - Mood altered [Unknown]
  - Multiple sclerosis relapse [Unknown]
  - Ear pain [Unknown]
  - Headache [Recovering/Resolving]
